FAERS Safety Report 7971340-4 (Version None)
Quarter: 2011Q4

REPORT INFORMATION
  Report Type: 
  Country: None (occurrence: None)
  Receive Date: 20111212
  Receipt Date: 20111205
  Transmission Date: 20120403
  Serious: Yes (Other)
  Sender: FDA-Public Use
  Company Number: US-PFIZER INC-2011295021

PATIENT
  Sex: Male
  Weight: 120 kg

DRUGS (1)
  1. NORVASC [Suspect]
     Indication: HYPERTENSION
     Dosage: UNKNOWN DOSE, 1X/DAY
     Route: 048
     Dates: start: 20060101, end: 20110101

REACTIONS (6)
  - GINGIVAL HYPERTROPHY [None]
  - VIITH NERVE PARALYSIS [None]
  - GINGIVAL RECESSION [None]
  - TOOTHACHE [None]
  - DRY MOUTH [None]
  - PAIN [None]
